FAERS Safety Report 9538886 (Version 4)
Quarter: 2013Q4

REPORT INFORMATION
  Report Type: Report from Study
  Country: US (occurrence: US)
  Receive Date: 20130920
  Receipt Date: 20131108
  Transmission Date: 20140711
  Serious: Yes (Disabling, Other)
  Sender: FDA-Public Use
  Company Number: US-JNJFOC-20130909146

PATIENT
  Age: 58 Year
  Sex: Male
  Weight: 137.44 kg

DRUGS (19)
  1. ZYTIGA [Suspect]
     Indication: PROSTATE CANCER
     Route: 048
     Dates: end: 20130628
  2. ZYTIGA [Suspect]
     Indication: PROSTATE CANCER
     Dosage: 250 MG X 4
     Route: 048
     Dates: start: 20120817, end: 20130522
  3. AVAPRO [Concomitant]
     Indication: BLOOD PRESSURE ABNORMAL
     Route: 048
  4. LEXAPRO [Concomitant]
     Indication: DEPRESSION
     Route: 048
  5. BUPROPION [Concomitant]
     Indication: DEPRESSION
     Dosage: 24-150MG
     Route: 048
  6. CINNAMON [Concomitant]
     Route: 048
  7. CO-ENZYME Q10 [Concomitant]
     Route: 065
  8. MILK THISTLE [Concomitant]
  9. PROBIOTIC [Concomitant]
  10. TURMERIC [Concomitant]
  11. VITAMIN B12 [Concomitant]
     Route: 048
  12. VITAMIN C [Concomitant]
     Route: 048
  13. VITAMIN D [Concomitant]
     Route: 048
  14. DEXTROMETHORPHAN [Concomitant]
     Indication: COUGH
     Route: 048
  15. PREDNISONE [Concomitant]
     Route: 048
  16. PROVENGE VACCINE [Concomitant]
     Route: 065
  17. FISH OIL [Concomitant]
     Route: 048
  18. LUTEIN [Concomitant]
     Route: 048
  19. ACIDOPHILUS [Concomitant]
     Route: 048

REACTIONS (7)
  - Fatigue [Recovering/Resolving]
  - Dizziness [Recovering/Resolving]
  - Syncope [Recovering/Resolving]
  - Prostatic specific antigen increased [Unknown]
  - Drug ineffective [Not Recovered/Not Resolved]
  - Myalgia [Recovering/Resolving]
  - Fall [Recovering/Resolving]
